FAERS Safety Report 21644687 (Version 1)
Quarter: 2022Q4

REPORT INFORMATION
  Report Type: Spontaneous
  Country: CA (occurrence: CA)
  Receive Date: 20221125
  Receipt Date: 20221125
  Transmission Date: 20230112
  Serious: Yes (Other)
  Sender: FDA-Public Use
  Company Number: CA-009507513-1803CAN006589

PATIENT
  Age: 66 Year
  Sex: Female

DRUGS (8)
  1. SINGULAIR [Suspect]
     Active Substance: MONTELUKAST SODIUM
     Indication: Product used for unknown indication
     Dosage: UNK
     Route: 065
  2. VENTOLIN [Suspect]
     Active Substance: ALBUTEROL SULFATE
     Indication: Product used for unknown indication
     Dosage: UNK; SINCE HER 30^S
     Route: 065
  3. SYMBICORT [Suspect]
     Active Substance: BUDESONIDE\FORMOTEROL FUMARATE DIHYDRATE
     Indication: Product used for unknown indication
     Dosage: 2 PUFFS, TWICE DAILY (BID)
     Route: 065
  4. ASPIRIN [Concomitant]
     Active Substance: ASPIRIN
     Dosage: 81 MG, UNK
     Route: 065
  5. CLOPIDOGREL [Concomitant]
     Active Substance: CLOPIDOGREL BISULFATE
     Dosage: 75 MG, UNK
     Route: 065
  6. IMOVANE [Concomitant]
     Active Substance: ZOPICLONE
     Dosage: UNK
     Route: 065
  7. METOPROLOL [Concomitant]
     Active Substance: METOPROLOL
     Dosage: 25 MG, UNK
     Route: 065
  8. SYNTHROID [Concomitant]
     Active Substance: LEVOTHYROXINE SODIUM
     Dosage: 100 MICROGRAM, UNK
     Route: 065

REACTIONS (16)
  - Acute myocardial infarction [Unknown]
  - Asthma [Not Recovered/Not Resolved]
  - Atrioventricular block [Unknown]
  - Carcinoid tumour [Unknown]
  - Cholecystectomy [Unknown]
  - Coronary artery disease [Unknown]
  - Dyspnoea [Recovered/Resolved]
  - Fibromyalgia [Unknown]
  - Hypertension [Unknown]
  - Hypothyroidism [Unknown]
  - Hysterectomy [Unknown]
  - Irritable bowel syndrome [Unknown]
  - Productive cough [Recovered/Resolved]
  - Varicose vein [Unknown]
  - Cough [Recovered/Resolved]
  - Wheezing [Recovered/Resolved]
